FAERS Safety Report 12505917 (Version 4)
Quarter: 2018Q2

REPORT INFORMATION
  Report Type: Report from Study
  Country: US (occurrence: US)
  Receive Date: 20160628
  Receipt Date: 20180611
  Transmission Date: 20180711
  Serious: Yes (Hospitalization, Other)
  Sender: FDA-Public Use
  Company Number: US-EISAI MEDICAL RESEARCH-EC-2016-017942

PATIENT
  Age: 53 Year
  Sex: Male
  Weight: 101.3 kg

DRUGS (17)
  1. ATORVASTATIN [Concomitant]
     Active Substance: ATORVASTATIN
     Route: 048
     Dates: start: 2013
  2. METOPROLOL TARTATE [Concomitant]
     Active Substance: METOPROLOL TARTRATE
     Route: 048
     Dates: start: 2012
  3. TRAMADOL HCL [Concomitant]
     Active Substance: TRAMADOL HYDROCHLORIDE
     Route: 048
     Dates: start: 2013
  4. RANITIDINE HCL [Concomitant]
     Active Substance: RANITIDINE HYDROCHLORIDE
  5. VITAMIN D3 [Concomitant]
     Active Substance: CHOLECALCIFEROL
     Route: 048
     Dates: start: 20141228
  6. TAMSULOSIN [Concomitant]
     Active Substance: TAMSULOSIN
     Route: 048
     Dates: start: 20160108
  7. ALBUTEROL. [Concomitant]
     Active Substance: ALBUTEROL
     Route: 050
     Dates: start: 20141215
  8. OMEPRAZOLE. [Concomitant]
     Active Substance: OMEPRAZOLE
     Route: 048
     Dates: start: 2012
  9. NITROSTAT [Concomitant]
     Active Substance: NITROGLYCERIN
     Route: 060
     Dates: start: 2010
  10. REQUIP [Concomitant]
     Active Substance: ROPINIROLE HYDROCHLORIDE
  11. ASPIRIN. [Concomitant]
     Active Substance: ASPIRIN
     Route: 048
     Dates: start: 2010
  12. PLACEBO [Suspect]
     Active Substance: UNSPECIFIED INGREDIENT
     Indication: WEIGHT CONTROL
     Route: 048
     Dates: start: 20141008, end: 20150813
  13. FISH OIL [Concomitant]
     Active Substance: FISH OIL
     Route: 048
     Dates: start: 20110312
  14. FLEXERIL HCL [Concomitant]
  15. LYRICA [Concomitant]
     Active Substance: PREGABALIN
  16. PLACEBO [Suspect]
     Active Substance: UNSPECIFIED INGREDIENT
     Route: 048
     Dates: start: 20150824, end: 20160620
  17. ADVAIR HFA [Concomitant]
     Active Substance: FLUTICASONE PROPIONATE\SALMETEROL XINAFOATE
     Route: 050
     Dates: start: 20141215

REACTIONS (2)
  - Intervertebral disc protrusion [Recovered/Resolved]
  - Suicidal ideation [Recovered/Resolved]

NARRATIVE: CASE EVENT DATE: 20160521
